FAERS Safety Report 17399278 (Version 1)
Quarter: 2020Q1

REPORT INFORMATION
  Report Type: Report from Study
  Country: US (occurrence: US)
  Receive Date: 20200211
  Receipt Date: 20200211
  Transmission Date: 20200409
  Serious: Yes (Hospitalization)
  Sender: FDA-Public Use
  Company Number: US-ROCHE-2544265

PATIENT
  Age: 64 Year
  Sex: Male
  Weight: 82.9 kg

DRUGS (5)
  1. TGR 1202 [Suspect]
     Active Substance: UMBRALISIB
     Indication: B-CELL LYMPHOMA REFRACTORY
  2. OBINUTUZUMAB. [Suspect]
     Active Substance: OBINUTUZUMAB
     Indication: B-CELL LYMPHOMA RECURRENT
     Dosage: ON 10/DEC/2019, HE RECEIVED LAST DOSE OF INTRAVENOUS OBINUTUZUMAB PRIOR TO THE ONSET OF SERIOUS ADVE
     Route: 042
     Dates: start: 20190207
  3. BENDAMUSTINE HYDROCHLORIDE. [Concomitant]
     Active Substance: BENDAMUSTINE HYDROCHLORIDE
     Route: 065
     Dates: start: 201902, end: 201912
  4. TGR 1202 [Suspect]
     Active Substance: UMBRALISIB
     Indication: B-CELL LYMPHOMA RECURRENT
     Dosage: ON 29/DEC/2019, HE RECEIVED LAST DOSE OF ORAL TGR 1202 PRIOR TO THE ONSET OF SERIOUS ADVERSE EVENT
     Route: 048
     Dates: start: 20190207
  5. OBINUTUZUMAB. [Suspect]
     Active Substance: OBINUTUZUMAB
     Indication: B-CELL LYMPHOMA REFRACTORY

REACTIONS (1)
  - Atrial fibrillation [Recovered/Resolved]

NARRATIVE: CASE EVENT DATE: 20191230
